FAERS Safety Report 5742509-4 (Version None)
Quarter: 2008Q2

REPORT INFORMATION
  Report Type: 
  Country: None (occurrence: None)
  Receive Date: 20080515
  Receipt Date: 20080430
  Transmission Date: 20081010
  Serious: Yes (Hospitalization)
  Sender: FDA-Public Use
  Company Number: WAES 0804USA03991

PATIENT
  Age: 42 Year
  Sex: Female

DRUGS (17)
  1. CANCIDAS [Suspect]
     Indication: ASPERGILLOSIS
     Dates: start: 20070619, end: 20070629
  2. CANCIDAS [Suspect]
     Indication: CYTOMEGALOVIRUS INFECTION
     Dates: start: 20070619, end: 20070629
  3. CANCIDAS [Suspect]
     Indication: ASPERGILLOSIS
     Dates: start: 20070630, end: 20070703
  4. CANCIDAS [Suspect]
     Indication: CYTOMEGALOVIRUS INFECTION
     Dates: start: 20070630, end: 20070703
  5. CANCIDAS [Suspect]
     Indication: ASPERGILLOSIS
     Dates: start: 20070619, end: 20070703
  6. CANCIDAS [Suspect]
     Indication: CYTOMEGALOVIRUS INFECTION
     Dates: start: 20070619, end: 20070703
  7. CANCIDAS [Suspect]
     Indication: ASPERGILLOSIS
     Dates: start: 20070718, end: 20070805
  8. CANCIDAS [Suspect]
     Indication: CYTOMEGALOVIRUS INFECTION
     Dates: start: 20070718, end: 20070805
  9. DURAGESIC-100 [Concomitant]
  10. FAMVIR [Concomitant]
  11. TAVANIC [Concomitant]
  12. GABAPENTIN [Concomitant]
  13. MEROPENEM [Concomitant]
  14. MYCOPHENOLATE MOFETIL [Concomitant]
  15. OMEPRAZOLE [Concomitant]
  16. PREDNISONE TAB [Concomitant]
  17. VORICONAZOLE [Concomitant]

REACTIONS (9)
  - ASPERGILLOSIS [None]
  - CONDITION AGGRAVATED [None]
  - CYTOMEGALOVIRUS INFECTION [None]
  - DISEASE PROGRESSION [None]
  - ENTEROCOLITIS [None]
  - ESCHERICHIA INFECTION [None]
  - HEPATOTOXICITY [None]
  - NEPHROPATHY TOXIC [None]
  - RENAL FAILURE CHRONIC [None]
